FAERS Safety Report 4349116-9 (Version None)
Quarter: 2004Q2

REPORT INFORMATION
  Report Type: 
  Country: None (occurrence: None)
  Receive Date: 20040427
  Receipt Date: 20040427
  Transmission Date: 20050107
  Serious: Yes (Hospitalization)
  Sender: FDA-Public Use
  Company Number: None

PATIENT
  Sex: Male
  Weight: 83.9154 kg

DRUGS (6)
  1. GATIFLOXACIN [Suspect]
     Indication: PROSTATITIS
     Dosage: 400 MG QD ORAL
     Route: 048
     Dates: start: 20040401, end: 20040419
  2. SAQUINAVIR [Concomitant]
  3. LAMIVUDINE/ZIDOVUDINE [Concomitant]
  4. IBUPROFEN [Concomitant]
  5. PROBENECID [Concomitant]
  6. COLCHICINE [Concomitant]

REACTIONS (1)
  - DIABETIC HYPEROSMOLAR COMA [None]
